FAERS Safety Report 4483452-0 (Version None)
Quarter: 2004Q4

REPORT INFORMATION
  Report Type: 
  Country: None (occurrence: None)
  Receive Date: 20041020
  Receipt Date: 20041013
  Transmission Date: 20050328
  Serious: Yes (Death)
  Sender: FDA-Public Use
  Company Number: 207971

PATIENT
  Age: 47 Year
  Sex: Male

DRUGS (5)
  1. XOLAIR [Suspect]
     Indication: ASTHMA
     Dosage: 150 MG, Q2W
     Dates: start: 20040201
  2. SINGULAIR [Concomitant]
  3. ADVAIR (FLUTICASONE PROPIONATE, SALMETEROL XINAFOATE) [Concomitant]
  4. XANAX [Concomitant]
  5. HYDROCODONE (HYDROCODONE BITATRATE) [Concomitant]

REACTIONS (1)
  - DEATH [None]
